FAERS Safety Report 8285553 (Version 2)
Quarter: 2012Q4

REPORT INFORMATION
  Report Type: Report from Study
  Country: CA (occurrence: CA)
  Receive Date: 20111213
  Receipt Date: 20121005
  Transmission Date: 20130627
  Serious: Yes (Other)
  Sender: FDA-Public Use
  Company Number: CA-ROCHE-1019449

PATIENT
  Age: 63 Year
  Sex: Female
  Weight: 93.07 kg

DRUGS (11)
  1. MABTHERA [Suspect]
     Indication: PRODUCT USED FOR UNKNOWN INDICATION
     Dosage: Day1 and Day 15, last dose prior to SAE was on 24/Sep/2012
     Route: 042
     Dates: start: 20110428
  2. CELEBREX [Concomitant]
     Route: 065
  3. METHOTREXATE [Concomitant]
     Indication: RHEUMATOID ARTHRITIS
     Route: 065
  4. CALCIUM [Concomitant]
     Route: 065
  5. VITAMIN D [Concomitant]
     Route: 065
  6. FOLIC ACID [Concomitant]
     Route: 065
  7. RAMIPRIL [Concomitant]
     Indication: HYPERTENSION
     Route: 065
  8. SULFASALAZINE [Concomitant]
     Indication: RHEUMATOID ARTHRITIS
     Route: 065
  9. GLUCAMINOL [Concomitant]
     Indication: DIABETES MELLITUS
     Route: 065
  10. TYLENOL #3 (CANADA) [Concomitant]
     Indication: PAIN
     Route: 065
  11. VITALUX [Concomitant]
     Indication: MACULAR DEGENERATION
     Route: 065

REACTIONS (3)
  - Macular degeneration [Unknown]
  - Nasopharyngitis [Recovering/Resolving]
  - Blood glucose increased [Recovered/Resolved]
